FAERS Safety Report 10815392 (Version 1)
Quarter: 2015Q1

REPORT INFORMATION
  Report Type: Spontaneous
  Country: FR (occurrence: FR)
  Receive Date: 20150218
  Receipt Date: 20150218
  Transmission Date: 20150721
  Serious: Yes (Hospitalization, Other)
  Sender: FDA-Public Use
  Company Number: FR-ASTRAZENECA-2015SE13979

PATIENT
  Age: 25430 Day
  Sex: Male

DRUGS (18)
  1. PARACETAMOL [Suspect]
     Active Substance: ACETAMINOPHEN
     Indication: PAIN
     Route: 048
     Dates: start: 201412, end: 20150108
  2. PLAVIX [Concomitant]
     Active Substance: CLOPIDOGREL BISULFATE
     Dates: start: 2007
  3. TAHOR [Concomitant]
     Active Substance: ATORVASTATIN CALCIUM
     Dates: start: 2008
  4. LANTUS SOLOSTAR [Suspect]
     Active Substance: INSULIN GLARGINE
     Indication: TYPE 2 DIABETES MELLITUS
     Route: 058
     Dates: start: 20150116
  5. LYRICA [Suspect]
     Active Substance: PREGABALIN
     Indication: DIABETIC NEUROPATHY
     Route: 048
     Dates: start: 20150125
  6. TRIATEC [Concomitant]
     Active Substance: RAMIPRIL
     Dates: end: 20150114
  7. BISOPROLOL/HYDROCHLOROTHIAZIDE [Concomitant]
     Active Substance: BISOPROLOL FUMARATE\HYDROCHLOROTHIAZIDE
     Dosage: 5 + 6.25 MG, 1 DF QD
     Dates: start: 2008, end: 20150114
  8. DIFFU K [Concomitant]
     Active Substance: POTASSIUM CHLORIDE
  9. LANTUS SOLOSTAR [Suspect]
     Active Substance: INSULIN GLARGINE
     Indication: TYPE 2 DIABETES MELLITUS
     Route: 058
     Dates: start: 20141202, end: 20150114
  10. LYRICA [Suspect]
     Active Substance: PREGABALIN
     Indication: DIABETIC NEUROPATHY
     Route: 048
     Dates: start: 201412, end: 20150114
  11. AMLOR [Concomitant]
     Active Substance: AMLODIPINE BESYLATE
     Dates: start: 2008
  12. COTAREG [Concomitant]
     Active Substance: HYDROCHLOROTHIAZIDE\VALSARTAN
     Dosage: 160 + 25 MG, 1 DF QD
     Dates: end: 20150114
  13. ESIDREX [Concomitant]
     Active Substance: HYDROCHLOROTHIAZIDE
  14. MOPRAL [Suspect]
     Active Substance: OMEPRAZOLE SODIUM
     Route: 048
     Dates: start: 201412, end: 20150114
  15. VOLTARENE [Suspect]
     Active Substance: DICLOFENAC SODIUM
     Route: 048
     Dates: start: 201412
  16. SMECTA [Suspect]
     Active Substance: MONTMORILLONITE
     Indication: DIARRHOEA
     Dosage: IF NEEDED
     Route: 048
     Dates: start: 201412
  17. LAMICTAL [Concomitant]
     Active Substance: LAMOTRIGINE
     Dates: start: 2008
  18. NOVONOM [Concomitant]
     Dates: start: 2007

REACTIONS (5)
  - Extremity necrosis [Unknown]
  - Delirium tremens [Unknown]
  - Cyanosis [Unknown]
  - Skin necrosis [Recovering/Resolving]
  - Lymphocytic infiltration [Unknown]

NARRATIVE: CASE EVENT DATE: 20141225
